FAERS Safety Report 5744211-1 (Version None)
Quarter: 2008Q2

REPORT INFORMATION
  Report Type: 
  Country: None (occurrence: None)
  Receive Date: 20080520
  Receipt Date: 20080512
  Transmission Date: 20081010
  Serious: Yes (Death)
  Sender: FDA-Public Use
  Company Number: US-AVENTIS-200810226US

PATIENT
  Age: 72 Year
  Sex: Female

DRUGS (10)
  1. APIDRA [Suspect]
     Dosage: DOSE: 5-12 UNITS
     Route: 051
     Dates: start: 20070101
  2. OPTICLIK (INSULIN INJECTION PEN) [Suspect]
     Dates: start: 20071101
  3. OPTICLIK (INSULIN INJECTION PEN) [Suspect]
     Dates: start: 20070101
  4. OPTICLIK GREY [Suspect]
     Dates: start: 20070101
  5. ASPIRIN [Concomitant]
     Dosage: DOSE: UNK
  6. LASIX [Concomitant]
     Dosage: DOSE: UNK
  7. DIGITALIS TAB [Concomitant]
     Dosage: DOSE: UNK
  8. LANOXIN [Concomitant]
     Dosage: DOSE: UNK
  9. THYROID TAB [Concomitant]
     Dosage: DOSE: UNK
  10. OXYGEN [Concomitant]

REACTIONS (3)
  - DEATH [None]
  - INJECTION SITE BRUISING [None]
  - SKIN DISCOLOURATION [None]
